FAERS Safety Report 14499994 (Version 1)
Quarter: 2018Q1

REPORT INFORMATION
  Report Type: Not Available
  Country: US (occurrence: US)
  Receive Date: 20180207
  Receipt Date: 20180207
  Transmission Date: 20180509
  Serious: No
  Sender: FDA-Public Use
  Company Number: US-FOUNDATIONCONSUMERHC-2017-US-013400

PATIENT
  Age: 17 Year
  Sex: Female
  Weight: 99.79 kg

DRUGS (1)
  1. PLAN B ONE-STEP [Suspect]
     Active Substance: LEVONORGESTREL
     Dosage: 1 TAB
     Route: 048
     Dates: start: 20171103, end: 20171103

REACTIONS (6)
  - Mood altered [Unknown]
  - Breast tenderness [Unknown]
  - Crying [Unknown]
  - Menstrual disorder [Unknown]
  - Acne [Unknown]
  - Vaginal haemorrhage [Unknown]

NARRATIVE: CASE EVENT DATE: 20171107
